FAERS Safety Report 17563886 (Version 1)
Quarter: 2020Q1

REPORT INFORMATION
  Report Type: Spontaneous
  Country: US (occurrence: US)
  Receive Date: 20200320
  Receipt Date: 20200320
  Transmission Date: 20200409
  Serious: Yes (Other)
  Sender: FDA-Public Use
  Company Number: NVSC2020US075050

PATIENT
  Age: 54 Year
  Sex: Male

DRUGS (1)
  1. PYRIDOSTIGMINE [Suspect]
     Active Substance: PYRIDOSTIGMINE
     Indication: MYASTHENIA GRAVIS
     Dosage: 30 MG, QD (THREE TIMES)
     Route: 065

REACTIONS (2)
  - Gastrointestinal disorder [Unknown]
  - Myasthenia gravis [Unknown]
